FAERS Safety Report 9897195 (Version 1)
Quarter: 2014Q1

REPORT INFORMATION
  Report Type: Report from Study
  Country: FR (occurrence: FR)
  Receive Date: 20140214
  Receipt Date: 20140214
  Transmission Date: 20141002
  Serious: Yes (Hospitalization, Other)
  Sender: FDA-Public Use
  Company Number: FR-ROCHE-1343501

PATIENT
  Sex: Female

DRUGS (6)
  1. RITUXIMAB [Suspect]
     Indication: RHEUMATOID ARTHRITIS
     Dosage: D1 AND  D15
     Route: 065
     Dates: start: 20080208
  2. RITUXIMAB [Suspect]
     Dosage: D1
     Route: 065
     Dates: start: 20111124
  3. RITUXIMAB [Suspect]
     Dosage: D1 AND D15
     Route: 065
     Dates: start: 20120921
  4. PARACETAMOL [Concomitant]
  5. CORTANCYL [Concomitant]
     Route: 065
  6. METHYLPREDNISOLONE [Concomitant]
     Route: 065

REACTIONS (11)
  - Hepatitis cholestatic [Not Recovered/Not Resolved]
  - Cardiac failure [Unknown]
  - White matter lesion [Unknown]
  - Asthenia [Unknown]
  - Infusion related reaction [Recovered/Resolved]
  - Haematuria [Not Recovered/Not Resolved]
  - Lymphopenia [Not Recovered/Not Resolved]
  - Intertrigo [Not Recovered/Not Resolved]
  - Cough [Not Recovered/Not Resolved]
  - Dizziness [Not Recovered/Not Resolved]
  - Bronchitis [Recovered/Resolved]
